FAERS Safety Report 16747602 (Version 2)
Quarter: 2019Q4

REPORT INFORMATION
  Report Type: Spontaneous
  Country: ES (occurrence: ES)
  Receive Date: 20190827
  Receipt Date: 20191007
  Transmission Date: 20200122
  Serious: Yes (Other)
  Sender: FDA-Public Use
  Company Number: ES-MYLANLABS-2019M1079695

PATIENT
  Age: 17 Year
  Sex: Male
  Weight: 70 kg

DRUGS (11)
  1. TENOFOVIR [Suspect]
     Active Substance: TENOFOVIR
     Dosage: 245 MG, QD
     Route: 065
     Dates: start: 201511
  2. BICARBONATE [Concomitant]
     Active Substance: SODIUM BICARBONATE
     Dosage: UNK
  3. PREDNISONE. [Concomitant]
     Active Substance: PREDNISONE
     Dosage: UNK
  4. CELLCEPT [Concomitant]
     Active Substance: MYCOPHENOLATE MOFETIL\MYCOPHENOLATE MOFETIL HYDROCHLORIDE
     Dosage: UNK
  5. ENALAPRIL [Concomitant]
     Active Substance: ENALAPRIL
     Dosage: UNK
     Dates: start: 201808, end: 201812
  6. VITAMIN D                          /00318501/ [Concomitant]
     Active Substance: CHOLECALCIFEROL
  7. ARANESP [Concomitant]
     Active Substance: DARBEPOETIN ALFA
     Dosage: UNK
  8. TENOFOVIR [Suspect]
     Active Substance: TENOFOVIR
     Indication: CHRONIC HEPATITIS B
     Dosage: 245 MG, Q1WK
     Route: 065
     Dates: start: 201411
  9. TENOFOVIR [Suspect]
     Active Substance: TENOFOVIR
     Dosage: 245 MG, QOD
     Route: 065
     Dates: start: 201807
  10. TENOFOVIR [Suspect]
     Active Substance: TENOFOVIR
     Dosage: 245 MG, Q4DAYS
     Route: 065
     Dates: start: 201902
  11. CYCLOSPORIN A [Concomitant]
     Active Substance: CYCLOSPORINE
     Dosage: 15 UNK, QD
     Dates: start: 201801

REACTIONS (9)
  - Single functional kidney [Not Recovered/Not Resolved]
  - Renal tubular injury [Unknown]
  - Shock haemorrhagic [Recovered/Resolved]
  - Renal transplant [Recovered/Resolved]
  - Helicobacter duodenal ulcer [Unknown]
  - Glomerular filtration rate decreased [Unknown]
  - Treatment noncompliance [Unknown]
  - Renal tubular disorder [Unknown]
  - Gastrointestinal haemorrhage [Unknown]

NARRATIVE: CASE EVENT DATE: 201511
